FAERS Safety Report 8258283-6 (Version None)
Quarter: 2012Q2

REPORT INFORMATION
  Report Type: 
  Country: None (occurrence: None)
  Receive Date: 20120404
  Receipt Date: 20120328
  Transmission Date: 20120825
  Serious: Yes (Death, Other)
  Sender: FDA-Public Use
  Company Number: US-BAYER-2012-007147

PATIENT
  Age: 62 Year
  Sex: Male

DRUGS (2)
  1. NEXAVAR [Suspect]
     Indication: RENAL CELL CARCINOMA
     Dosage: 400 MG, BID
     Route: 048
     Dates: start: 20120116
  2. ANTIHYPERTENSIVES [Concomitant]
     Dosage: UNK
     Route: 048
     Dates: end: 20120101

REACTIONS (6)
  - DEATH [None]
  - PARAESTHESIA [None]
  - DYSPHONIA [None]
  - BLOOD PRESSURE INCREASED [None]
  - RESTLESSNESS [None]
  - PRURITUS [None]
